FAERS Safety Report 8550865-7 (Version None)
Quarter: 2012Q3

REPORT INFORMATION
  Report Type: 
  Country: None (occurrence: None)
  Receive Date: 20120730
  Receipt Date: 20110907
  Transmission Date: 20120928
  Serious: No
  Sender: FDA-Public Use
  Company Number: US-GLAXOSMITHKLINE-A0943726A

PATIENT
  Age: 50 Year
  Sex: Female

DRUGS (2)
  1. RANITIDINE [Suspect]
     Indication: IMPAIRED GASTRIC EMPTYING
     Dosage: 300MG THREE TIMES PER DAY
     Route: 048
  2. TPN [Concomitant]

REACTIONS (1)
  - DRUG INEFFECTIVE [None]
